FAERS Safety Report 4541247-3 (Version None)
Quarter: 2004Q4

REPORT INFORMATION
  Report Type: 
  Country: None (occurrence: None)
  Receive Date: 20041228
  Receipt Date: 20041214
  Transmission Date: 20050328
  Serious: Yes (Hospitalization)
  Sender: FDA-Public Use
  Company Number: 200415859BCC

PATIENT
  Age: 80 Year
  Sex: Male
  Weight: 89.8122 kg

DRUGS (4)
  1. ALEVE (CAPLET) [Suspect]
     Indication: ARTHRITIS
     Dosage: 440 MG, ONCE, ORAL
     Route: 048
     Dates: start: 20041125
  2. ATENOLOL [Concomitant]
  3. LOSARTAN POTASSIUM [Concomitant]
  4. CAPOTEN [Concomitant]

REACTIONS (6)
  - ANAPHYLACTIC REACTION [None]
  - APHASIA [None]
  - CIRCULATORY COLLAPSE [None]
  - DYSPNOEA [None]
  - ERYTHEMA [None]
  - PRURITUS [None]
